FAERS Safety Report 9815795 (Version 1)
Quarter: 2014Q1

REPORT INFORMATION
  Report Type: Spontaneous
  Country: CN (occurrence: CN)
  Receive Date: 20140114
  Receipt Date: 20140114
  Transmission Date: 20141002
  Serious: Yes (Death)
  Sender: FDA-Public Use
  Company Number: CN-BAYER-2014-001030

PATIENT
  Age: 57 Year
  Sex: Female
  Weight: 50 kg

DRUGS (2)
  1. BAYASPIRIN [Suspect]
     Indication: DIZZINESS
     Dosage: 0.1 G, QD
     Route: 048
     Dates: start: 20131220, end: 20131223
  2. ROSUVASTATIN CALCIUM [Suspect]
     Indication: DIZZINESS
     Dosage: 10 MG, QD
     Route: 048
     Dates: start: 20131220

REACTIONS (1)
  - Death [Fatal]
